FAERS Safety Report 5234056-3 (Version None)
Quarter: 2007Q1

REPORT INFORMATION
  Report Type: 
  Country: None (occurrence: None)
  Receive Date: 20070208
  Receipt Date: 20070131
  Transmission Date: 20070707
  Serious: Yes (Other)
  Sender: FDA-Public Use
  Company Number: DE-PFIZER INC-2006155343

PATIENT
  Sex: Male

DRUGS (1)
  1. CELEBREX [Suspect]
     Indication: ARTHRITIS
     Dosage: DAILY DOSE:200MG
     Route: 048
     Dates: start: 20061124, end: 20061124

REACTIONS (3)
  - HYPOTENSION [None]
  - PAIN IN EXTREMITY [None]
  - SKIN REACTION [None]
